FAERS Safety Report 24867833 (Version 1)
Quarter: 2025Q1

REPORT INFORMATION
  Report Type: Spontaneous
  Country: US (occurrence: None)
  Receive Date: 20250117
  Receipt Date: 20250117
  Transmission Date: 20250409
  Serious: Yes (Other)
  Sender: FDA-CTU
  Company Number: None

PATIENT
  Age: 30 Year
  Sex: Female
  Weight: 54 kg

DRUGS (5)
  1. CEQUA [Suspect]
     Active Substance: CYCLOSPORINE
     Indication: Dry eye
     Dosage: 1 DROP TWICE A DAY OPHTHALMIC?
     Route: 047
     Dates: start: 20241126, end: 20241204
  2. BRIVIACT [Concomitant]
     Active Substance: BRIVARACETAM
  3. HYDROXYCHLOROQUINE [Concomitant]
     Active Substance: HYDROXYCHLOROQUINE
  4. VENLAFAXINE [Concomitant]
     Active Substance: VENLAFAXINE HYDROCHLORIDE
  5. PROBIOTICS NOS [Concomitant]
     Active Substance: PROBIOTICS NOS

REACTIONS (10)
  - Eyelid margin crusting [None]
  - Eye swelling [None]
  - Multiple allergies [None]
  - Eye irritation [None]
  - Sinusitis [None]
  - Upper-airway cough syndrome [None]
  - Oropharyngeal pain [None]
  - Lethargy [None]
  - Sjogren^s syndrome [None]
  - Condition aggravated [None]

NARRATIVE: CASE EVENT DATE: 20241204
